FAERS Safety Report 9124655 (Version 1)
Quarter: 2013Q1

REPORT INFORMATION
  Report Type: Spontaneous
  Country: US (occurrence: US)
  Receive Date: 20130227
  Receipt Date: 20130227
  Transmission Date: 20140127
  Serious: No
  Sender: FDA-Public Use
  Company Number: US-MYLANLABS-2012S1006250

PATIENT
  Age: 74 Year
  Sex: Male

DRUGS (3)
  1. ALBUTEROL SULFATE [Suspect]
     Indication: DYSPNOEA
     Route: 055
     Dates: start: 20111201
  2. IPRATROPIUM BROMIDE [Suspect]
     Indication: DYSPNOEA
     Route: 055
     Dates: start: 20111201
  3. OXYGEN [Concomitant]
     Indication: CHRONIC OBSTRUCTIVE PULMONARY DISEASE
     Dosage: 2 LITERS CONTINUOUS
     Route: 045

REACTIONS (2)
  - Drug effect decreased [Not Recovered/Not Resolved]
  - Dyspnoea [Not Recovered/Not Resolved]
